FAERS Safety Report 21069666 (Version 3)
Quarter: 2024Q3

REPORT INFORMATION
  Report Type: Spontaneous
  Country: US (occurrence: US)
  Receive Date: 20220712
  Receipt Date: 20240722
  Transmission Date: 20241017
  Serious: No
  Sender: ASTELLAS
  Company Number: US-ASTELLAS-2022US021919

PATIENT
  Sex: Female

DRUGS (4)
  1. MYRBETRIQ [Suspect]
     Active Substance: MIRABEGRON
     Indication: Urinary incontinence
     Dosage: 25 MG, ONCE DAILY (BEFORE LUNCH)
     Route: 048
     Dates: start: 20220513
  2. CULTURELLE [Concomitant]
     Active Substance: LACTOBACILLUS RHAMNOSUS
     Indication: Product used for unknown indication
     Dosage: UNK UNK, UNKNOWN FREQ.
     Route: 065
  3. MECLIZINE [Concomitant]
     Active Substance: MECLIZINE HYDROCHLORIDE
     Indication: Dizziness
     Dosage: UNK UNK, UNKNOWN FREQ.
     Route: 065
  4. COVID-19 vaccine [Concomitant]
     Indication: COVID-19
     Dosage: UNK UNK, UNKNOWN FREQ.
     Route: 065

REACTIONS (2)
  - Arthritis [Not Recovered/Not Resolved]
  - Therapeutic product effect incomplete [Not Recovered/Not Resolved]
